FAERS Safety Report 4679455-3 (Version None)
Quarter: 2005Q2

REPORT INFORMATION
  Report Type: 
  Country: None (occurrence: None)
  Receive Date: 20050602
  Receipt Date: 20050512
  Transmission Date: 20051028
  Serious: Yes (Life-Threatening, Hospitalization)
  Sender: FDA-Public Use
  Company Number: US-ABBOTT-05P-163-0300426-00

PATIENT
  Sex: Male
  Weight: 72 kg

DRUGS (6)
  1. RITONAVIR SOFT GELATIN CAPSULES [Suspect]
     Indication: HIV INFECTION
     Route: 048
     Dates: start: 20050411
  2. TMC114 [Concomitant]
     Indication: HIV INFECTION
     Route: 048
     Dates: start: 20050411
  3. DAPSONE [Concomitant]
     Indication: PNEUMOCYSTIS JIROVECI PNEUMONIA
     Route: 048
  4. FLUCONAZOLE [Concomitant]
     Indication: CANDIDIASIS
     Route: 048
  5. FLUCONAZOLE [Concomitant]
     Indication: ANTIFUNGAL PROPHYLAXIS
  6. FLUCONAZOLE [Concomitant]
     Indication: PROPHYLAXIS

REACTIONS (3)
  - MYCOBACTERIUM AVIUM COMPLEX INFECTION [None]
  - PNEUMOCYSTIS JIROVECI PNEUMONIA [None]
  - TUBERCULOSIS [None]
